FAERS Safety Report 7091627-X (Version None)
Quarter: 2010Q4

REPORT INFORMATION
  Report Type: 
  Country: None (occurrence: None)
  Receive Date: 20101109
  Receipt Date: 20090626
  Transmission Date: 20110411
  Serious: No
  Sender: FDA-Public Use
  Company Number: US-KINGPHARMUSA00001-K200900779

PATIENT

DRUGS (1)
  1. FLECTOR [Suspect]
     Dosage: 1 PATCH, UNK
     Route: 061

REACTIONS (2)
  - APPLICATION SITE HYPERSENSITIVITY [None]
  - HYPERSENSITIVITY [None]
